FAERS Safety Report 7501466-0 (Version None)
Quarter: 2011Q2

REPORT INFORMATION
  Report Type: 
  Country: None (occurrence: None)
  Receive Date: 20110524
  Receipt Date: 20090625
  Transmission Date: 20111010
  Serious: Yes (Death, Hospitalization, Other)
  Sender: FDA-Public Use
  Company Number: US-BAYER-2011-026195

PATIENT
  Age: 69 Year
  Sex: Male
  Weight: 91 kg

DRUGS (11)
  1. WARFARIN SODIUM [Concomitant]
     Dosage: VARIED DOSE DAILT
     Route: 048
  2. VANCOMYCIN [Concomitant]
     Dosage: 1 GRAM EVERY 24 HOURS FOR 6 WEEKS
     Route: 042
     Dates: start: 20060301, end: 20060401
  3. NOVOLIN 70/30 [Concomitant]
     Dosage: 2 X DAILY
     Route: 058
  4. PROTAMINE SULFATE [Concomitant]
     Dosage: UNK
     Route: 042
     Dates: start: 20060626
  5. COREG [Concomitant]
     Dosage: 25 MG, BID
     Route: 048
  6. MORPHINE [Concomitant]
     Dosage: UNK
     Route: 042
     Dates: start: 20060626
  7. HEPARIN [Concomitant]
     Dosage: 28,000 UNITS
     Route: 042
     Dates: start: 20060626
  8. TRASYLOL [Suspect]
     Indication: CORONARY ARTERY BYPASS
     Dosage: UNK
     Route: 042
     Dates: start: 20060626
  9. ISOSORBIDE DINITRATE [Concomitant]
     Dosage: 30 MG, QD
     Route: 048
  10. VANCOMYCIN [Concomitant]
     Dosage: 500MG
     Route: 042
     Dates: start: 20060626
  11. FUROSEMIDE [Concomitant]
     Dosage: 40 MG, QD
     Route: 048

REACTIONS (12)
  - PAIN [None]
  - ANXIETY [None]
  - INJURY [None]
  - RENAL IMPAIRMENT [None]
  - RENAL INJURY [None]
  - ANHEDONIA [None]
  - UNEVALUABLE EVENT [None]
  - MULTI-ORGAN FAILURE [None]
  - FEAR [None]
  - RENAL FAILURE [None]
  - EMOTIONAL DISORDER [None]
  - STRESS [None]
